FAERS Safety Report 15878220 (Version 6)
Quarter: 2022Q2

REPORT INFORMATION
  Report Type: Spontaneous
  Country: US (occurrence: US)
  Receive Date: 20190128
  Receipt Date: 20220506
  Transmission Date: 20220721
  Serious: No
  Sender: FDA-Public Use
  Company Number: US-PFIZER INC-2019036715

PATIENT
  Age: 47 Year
  Sex: Female

DRUGS (1)
  1. XELJANZ [Suspect]
     Active Substance: TOFACITINIB CITRATE
     Indication: Rheumatoid arthritis
     Dosage: 5 MG, 2X/DAY
     Route: 048
     Dates: start: 2018, end: 202012

REACTIONS (8)
  - Therapeutic product effect incomplete [Unknown]
  - Drug ineffective [Unknown]
  - Product dose omission issue [Unknown]
  - Asthenia [Unknown]
  - Pain in extremity [Unknown]
  - Joint swelling [Unknown]
  - Illness [Unknown]
  - Respiratory symptom [Unknown]

NARRATIVE: CASE EVENT DATE: 20201201
